FAERS Safety Report 7957269-6 (Version None)
Quarter: 2011Q4

REPORT INFORMATION
  Report Type: 
  Country: None (occurrence: None)
  Receive Date: 20111130
  Receipt Date: 20111120
  Transmission Date: 20120403
  Serious: Yes (Hospitalization)
  Sender: FDA-Public Use
  Company Number: LEO-2011-01010

PATIENT
  Age: 58 Year
  Sex: Male

DRUGS (1)
  1. INNOHEP [Suspect]
     Indication: HAEMODIALYSIS
     Dosage: 4500 IU,

REACTIONS (1)
  - ARTERIOVENOUS FISTULA THROMBOSIS [None]
